FAERS Safety Report 4401686-8 (Version None)
Quarter: 2004Q3

REPORT INFORMATION
  Report Type: 
  Country: None (occurrence: None)
  Receive Date: 20040719
  Receipt Date: 20040707
  Transmission Date: 20050211
  Serious: Yes (Disabling)
  Sender: FDA-Public Use
  Company Number: JP-GLAXOSMITHKLINE-B0338387A

PATIENT
  Age: 57 Year
  Sex: Male

DRUGS (7)
  1. LAMIVUDINE [Suspect]
     Indication: HIV INFECTION
     Dosage: 150MG TWICE PER DAY
     Route: 048
     Dates: start: 20010331, end: 20031201
  2. STAVUDINE [Suspect]
     Indication: HIV INFECTION
     Route: 048
     Dates: start: 20010331, end: 20031201
  3. NELFINAVIR MESYLATE [Suspect]
     Indication: HIV INFECTION
     Route: 048
     Dates: start: 20010331, end: 20031201
  4. BENZBROMARONE [Concomitant]
     Dosage: 50MG PER DAY
     Route: 048
  5. BEZAFIBRATE [Concomitant]
     Dosage: 200MG TWICE PER DAY
     Route: 048
  6. DICLOFENAC SODIUM [Concomitant]
     Indication: TOOTHACHE
     Dosage: 25MG THREE TIMES PER DAY
     Route: 065
  7. AMLODIPINE [Concomitant]
     Indication: HYPERTENSION
     Dosage: 5MG PER DAY
     Route: 048
     Dates: start: 20030526

REACTIONS (1)
  - OSTEONECROSIS [None]
